FAERS Safety Report 4486654-2 (Version None)
Quarter: 2004Q4

REPORT INFORMATION
  Report Type: 
  Country: None (occurrence: None)
  Receive Date: 20041027
  Receipt Date: 20041022
  Transmission Date: 20050328
  Serious: Yes (Other)
  Sender: FDA-Public Use
  Company Number: 200414011FR

PATIENT
  Age: 79 Year
  Sex: Female

DRUGS (2)
  1. KETEK [Suspect]
     Indication: PNEUMONIA
     Route: 048
     Dates: start: 20041001
  2. SOLUPRED [Suspect]
     Route: 048
     Dates: start: 20041001

REACTIONS (2)
  - EYE DISORDER [None]
  - HALLUCINATION, VISUAL [None]
